FAERS Safety Report 5013855-7 (Version None)
Quarter: 2006Q2

REPORT INFORMATION
  Report Type: 
  Country: None (occurrence: None)
  Receive Date: 20060525
  Receipt Date: 20060512
  Transmission Date: 20061013
  Serious: Yes (Hospitalization)
  Sender: FDA-Public Use
  Company Number: 2006063472

PATIENT
  Age: 62 Year
  Sex: Female

DRUGS (8)
  1. SUTENT [Suspect]
     Indication: RENAL CELL CARCINOMA STAGE UNSPECIFIED
     Dosage: 50 MG (50  MG, ONCE DAILY - INTERVAL: 4WKS ON, 2 OFF), ORAL
     Route: 048
     Dates: start: 20060504, end: 20060512
  2. STUGERON (CINNARIZINE) [Concomitant]
  3. BETASERC (BETAHISTINE HYDROCHLORIDE) [Concomitant]
  4. LOSFERRON (ASCORBIC ACID, FERROUS GLUCONATE) [Concomitant]
  5. CALCIUM CARBONATE [Concomitant]
  6. CIPRAMIL (CITALOPRAM HYDROBROMIDE) [Concomitant]
  7. PARACETAMOL [Concomitant]
  8. STILNOCT (ZOLPIDEM TARTRATE) [Concomitant]

REACTIONS (2)
  - HALLUCINATION, VISUAL [None]
  - PYREXIA [None]
